FAERS Safety Report 6302866-7 (Version None)
Quarter: 2009Q3

REPORT INFORMATION
  Report Type: 
  Country: None (occurrence: None)
  Receive Date: 20090810
  Receipt Date: 20090730
  Transmission Date: 20100115
  Serious: No
  Sender: FDA-Public Use
  Company Number: US-ELI_LILLY_AND_COMPANY-US200908000529

PATIENT
  Sex: Female

DRUGS (3)
  1. CYMBALTA [Suspect]
     Indication: FIBROMYALGIA
     Dosage: 30 MG, UNK
     Dates: start: 20090209, end: 20090301
  2. CYMBALTA [Suspect]
     Dosage: 60 MG, UNK
     Dates: start: 20090301, end: 20090601
  3. CYMBALTA [Suspect]
     Dosage: 90 MG, UNK
     Dates: start: 20090602, end: 20090730

REACTIONS (4)
  - ALANINE AMINOTRANSFERASE INCREASED [None]
  - ANAEMIA [None]
  - ASPARTATE AMINOTRANSFERASE INCREASED [None]
  - BLOOD IRON INCREASED [None]
